FAERS Safety Report 20872983 (Version 1)
Quarter: 2022Q2

REPORT INFORMATION
  Report Type: Other
  Country: US (occurrence: None)
  Receive Date: 20220525
  Receipt Date: 20220525
  Transmission Date: 20220721
  Serious: Yes (Death)
  Sender: FDA-Public Use
  Company Number: US-ROCHE-2991905

PATIENT
  Sex: Female
  Weight: 61.2 kg

DRUGS (43)
  1. ALECENSA [Suspect]
     Active Substance: ALECTINIB HYDROCHLORIDE
     Indication: Lung neoplasm malignant
     Route: 048
  2. ALECTINIB [Concomitant]
     Active Substance: ALECTINIB
     Dosage: /JAN/2017
     Route: 048
     Dates: start: 20190513, end: 20190924
  3. ALECTINIB [Concomitant]
     Active Substance: ALECTINIB
     Route: 048
     Dates: start: 20190924
  4. ELIQUIS [Concomitant]
     Active Substance: APIXABAN
     Route: 048
  5. SYMBICORT [Concomitant]
     Active Substance: BUDESONIDE\FORMOTEROL FUMARATE DIHYDRATE
  6. BUMEX [Concomitant]
     Active Substance: BUMETANIDE
  7. TUMS EX [Concomitant]
     Active Substance: CALCIUM CARBONATE
     Indication: Dyspepsia
     Route: 048
     Dates: start: 20190924
  8. CELEXA [Concomitant]
     Active Substance: CITALOPRAM HYDROBROMIDE
     Route: 048
  9. DEXILANT [Concomitant]
     Active Substance: DEXLANSOPRAZOLE
     Route: 048
  10. LANOXIN [Concomitant]
     Active Substance: DIGOXIN
     Route: 048
     Dates: start: 20190924
  11. CARDIZEM CD [Concomitant]
     Active Substance: DILTIAZEM HYDROCHLORIDE
     Route: 048
  12. LASIX [Concomitant]
     Active Substance: FUROSEMIDE
     Route: 048
  13. GLUCOSAMINE HYDROCHLORIDE\SODIUM CHONDROITIN SULFATE [Concomitant]
     Active Substance: GLUCOSAMINE HYDROCHLORIDE\SODIUM CHONDROITIN SULFATE
     Route: 048
  14. ATIVAN [Concomitant]
     Active Substance: LORAZEPAM
     Indication: Anxiety
     Route: 048
     Dates: start: 20190924
  15. MINERALS\VITAMINS [Concomitant]
     Active Substance: MINERALS\VITAMINS
  16. OXYGEN [Concomitant]
     Active Substance: OXYGEN
  17. MIRALAX [Concomitant]
     Active Substance: POLYETHYLENE GLYCOL 3350
     Route: 048
  18. K-DUR [Concomitant]
     Active Substance: POTASSIUM CHLORIDE
  19. KLOR-CON [Concomitant]
     Active Substance: POTASSIUM CHLORIDE
  20. DELTASONE [Concomitant]
     Active Substance: PREDNISONE
     Route: 048
  21. ZANTAC [Concomitant]
     Active Substance: RANITIDINE HYDROCHLORIDE
     Route: 048
  22. FLORASTOR [SACCHAROMYCES BOULARDII] [Concomitant]
  23. ULTRAM [Concomitant]
     Active Substance: TRAMADOL HYDROCHLORIDE
  24. ELIQUIS [Concomitant]
     Active Substance: APIXABAN
  25. KEFLEX [Concomitant]
     Active Substance: CEPHALEXIN
  26. COMPAZINE [Concomitant]
     Active Substance: PROCHLORPERAZINE MALEATE
     Route: 048
  27. TYLENOL [Concomitant]
     Active Substance: ACETAMINOPHEN
     Indication: Pain
     Route: 048
     Dates: start: 20190924
  28. LIORESAL [Concomitant]
     Active Substance: BACLOFEN
     Indication: Muscle spasms
     Route: 048
     Dates: start: 20190924
  29. CITRACAL + D3 [Concomitant]
     Route: 048
  30. COLACE [Concomitant]
     Active Substance: DOCUSATE SODIUM
     Route: 048
     Dates: start: 20190924
  31. ANUSOL HC CREAM [Concomitant]
     Route: 054
     Dates: start: 20190924
  32. ANUSOL HC CREAM [Concomitant]
     Route: 054
     Dates: start: 20190924
  33. XOPENEX HFA [Concomitant]
     Active Substance: LEVALBUTEROL TARTRATE
     Indication: Wheezing
     Dates: start: 20191024
  34. ZOFRAN [Concomitant]
     Active Substance: ONDANSETRON HYDROCHLORIDE
     Indication: Nausea
     Route: 048
  35. ZOFRAN [Concomitant]
     Active Substance: ONDANSETRON HYDROCHLORIDE
     Indication: Vomiting
  36. ALIGN [Concomitant]
     Active Substance: BIFIDOBACTERIUM LONGUM SUBSP. INFANTIS
  37. PSYLLIUM HUSK [Concomitant]
     Active Substance: PSYLLIUM HUSK
  38. SIMETHICONE (DIMETHICONE) [Concomitant]
     Active Substance: DIMETHICONE
  39. SODIUM CHLORIDE [Concomitant]
     Active Substance: SODIUM CHLORIDE
  40. DEMADEX [Concomitant]
     Active Substance: TORSEMIDE
  41. CURCUMIN [Concomitant]
     Active Substance: CURCUMIN
  42. ANORO ELLIPTA [Concomitant]
     Active Substance: UMECLIDINIUM BROMIDE\VILANTEROL TRIFENATATE
     Dates: start: 20191024
  43. ALIMTA [Concomitant]
     Active Substance: PEMETREXED DISODIUM

REACTIONS (4)
  - Death [Fatal]
  - Constipation [Unknown]
  - Fatigue [Unknown]
  - Dyspnoea [Unknown]
